FAERS Safety Report 9546599 (Version 2)
Quarter: 2014Q1

REPORT INFORMATION
  Report Type: Report from Study
  Country: US (occurrence: US)
  Receive Date: 20130924
  Receipt Date: 20140204
  Transmission Date: 20141002
  Serious: Yes (Hospitalization, Other)
  Sender: FDA-Public Use
  Company Number: US-ROCHE-1278084

PATIENT
  Sex: Female

DRUGS (9)
  1. PEGASYS [Suspect]
     Indication: CHRONIC HEPATITIS C
     Dosage: PER 0.5ML PROCLOCK SUBCUTANEOUS WEEKLY
     Route: 058
  2. PEGASYS [Suspect]
     Route: 058
     Dates: start: 20131219
  3. PEGASYS [Suspect]
     Route: 058
     Dates: start: 20130514
  4. COPEGUS [Suspect]
     Indication: CHRONIC HEPATITIS C
     Route: 065
  5. COPEGUS [Suspect]
     Route: 065
  6. COPEGUS [Suspect]
     Route: 065
  7. COPEGUS [Suspect]
     Route: 065
  8. COPEGUS [Suspect]
     Route: 048
     Dates: start: 20130514
  9. INCIVEK [Suspect]
     Indication: CHRONIC HEPATITIS C
     Route: 065

REACTIONS (6)
  - Malaise [Unknown]
  - Fatigue [Unknown]
  - White blood cell count decreased [Unknown]
  - Red blood cell count decreased [Unknown]
  - Pancytopenia [Unknown]
  - Asthenia [Unknown]
